FAERS Safety Report 10853557 (Version 1)
Quarter: 2015Q1

REPORT INFORMATION
  Report Type: Spontaneous
  Country: US (occurrence: US)
  Receive Date: 20150223
  Receipt Date: 20150223
  Transmission Date: 20150721
  Serious: Yes (Hospitalization)
  Sender: FDA-Public Use
  Company Number: US-CIPLA LTD.-2015US01242

PATIENT
  Sex: Female

DRUGS (8)
  1. CISPLATIN. [Suspect]
     Active Substance: CISPLATIN
     Indication: OVARIAN CANCER RECURRENT
     Dosage: 75 MG/M2, UNK
  2. DOXORUBICIN [Suspect]
     Active Substance: DOXORUBICIN
     Indication: OVARIAN CANCER RECURRENT
     Dosage: 12 MG/M2, IN COMBINATION WITH CISPLATIN
  3. CISPLATIN. [Suspect]
     Active Substance: CISPLATIN
     Dosage: 40 MG/M2, IN COMBINATION WITH DOXORUBICIN
  4. 5-FLUOROURACIL [Suspect]
     Active Substance: FLUOROURACIL
     Indication: OVARIAN CANCER RECURRENT
     Dosage: 535 MG, UNK
     Route: 042
  5. MITOMYCIN. [Suspect]
     Active Substance: MITOMYCIN
     Indication: OVARIAN CANCER RECURRENT
     Dosage: 20 MG/M2, UNK
  6. CARBOPLATIN. [Suspect]
     Active Substance: CARBOPLATIN
     Indication: OVARIAN CANCER RECURRENT
     Dosage: 750-800 MG/M2
  7. DOXORUBICIN [Suspect]
     Active Substance: DOXORUBICIN
     Dosage: 15 MG/M2, UNK
  8. OXALIPLATIN. [Suspect]
     Active Substance: OXALIPLATIN
     Indication: OVARIAN CANCER RECURRENT
     Dosage: 460 MG/M2, AS MONOTHERAPY AND IN COMBINATION WITH 5-FU

REACTIONS (2)
  - Sepsis [Unknown]
  - Clostridium difficile colitis [Unknown]
